FAERS Safety Report 6544593-7 (Version None)
Quarter: 2010Q1

REPORT INFORMATION
  Report Type: 
  Country: None (occurrence: None)
  Receive Date: 20100121
  Receipt Date: 20100112
  Transmission Date: 20100710
  Serious: Yes (Hospitalization)
  Sender: FDA-Public Use
  Company Number: DE-JNJFOC-20100106569

PATIENT
  Age: 87 Year
  Sex: Female

DRUGS (4)
  1. REOPRO [Suspect]
     Indication: DRUG USE FOR UNKNOWN INDICATION
     Route: 042
  2. REOPRO [Suspect]
     Route: 042
  3. CLOPIDOGREL [Concomitant]
     Indication: MYOCARDIAL INFARCTION
  4. ACETYLSALICYLIC ACID [Concomitant]
     Indication: MYOCARDIAL INFARCTION

REACTIONS (2)
  - HIP FRACTURE [None]
  - SUBARACHNOID HAEMORRHAGE [None]
